FAERS Safety Report 19590134 (Version 1)
Quarter: 2021Q3

REPORT INFORMATION
  Report Type: Spontaneous
  Country: US (occurrence: US)
  Receive Date: 20210721
  Receipt Date: 20210721
  Transmission Date: 20211014
  Serious: No
  Sender: FDA-Public Use
  Company Number: US-ELI_LILLY_AND_COMPANY-US202106012933

PATIENT
  Age: 50 Year
  Sex: Female

DRUGS (2)
  1. TRULICITY [Suspect]
     Active Substance: DULAGLUTIDE
     Indication: TYPE 2 DIABETES MELLITUS
     Dosage: 0.75 MG, UNKNOWN
     Route: 058
  2. TRULICITY [Suspect]
     Active Substance: DULAGLUTIDE
     Dosage: 1.5 MG, UNKNOWN
     Route: 058
     Dates: start: 20210216

REACTIONS (11)
  - COVID-19 [Unknown]
  - Pyrexia [Unknown]
  - Scar [Unknown]
  - Peripheral swelling [Unknown]
  - Inflammation [Unknown]
  - C-reactive protein increased [Unknown]
  - Pruritus [Unknown]
  - Urticaria [Unknown]
  - Glycosylated haemoglobin increased [Unknown]
  - Cellulitis [Unknown]
  - Rash [Unknown]

NARRATIVE: CASE EVENT DATE: 20200221
